FAERS Safety Report 4567779-X (Version None)
Quarter: 2005Q1

REPORT INFORMATION
  Report Type: 
  Country: None (occurrence: None)
  Receive Date: 20050125
  Receipt Date: 20050125
  Transmission Date: 20050727
  Serious: Yes (Hospitalization)
  Sender: FDA-Public Use
  Company Number: None

PATIENT
  Age: 75 Year
  Sex: Male
  Weight: 86.1834 kg

DRUGS (6)
  1. VIOXX [Suspect]
     Indication: ARTHRITIS
     Dosage: 1 OR 2 DAILY UNTIL SEPT. 2004
     Dates: start: 20001230, end: 20040901
  2. HYDROCHLOROTHIAZIDE [Concomitant]
  3. ATACAND [Concomitant]
  4. NEXIUM [Concomitant]
  5. ZOCOR [Concomitant]
  6. MSD [Concomitant]

REACTIONS (3)
  - CEREBRAL ARTERY EMBOLISM [None]
  - FALL [None]
  - GAIT DISTURBANCE [None]
